FAERS Safety Report 6208944-5 (Version None)
Quarter: 2009Q2

REPORT INFORMATION
  Report Type: 
  Country: None (occurrence: None)
  Receive Date: 20090529
  Receipt Date: 20090514
  Transmission Date: 20091009
  Serious: Yes (Hospitalization)
  Sender: FDA-Public Use
  Company Number: JP-MERCK-0903USA00516

PATIENT
  Age: 50 Year
  Sex: Male

DRUGS (5)
  1. ZETIA [Suspect]
     Indication: DYSLIPIDAEMIA
     Route: 048
     Dates: start: 20080901, end: 20090212
  2. PEG-INTRON [Suspect]
     Indication: HEPATITIS C
     Route: 058
     Dates: start: 20090207, end: 20090207
  3. REBETOL [Suspect]
     Indication: HEPATITIS C
     Route: 048
     Dates: start: 20090207, end: 20090212
  4. NOVORAPID [Concomitant]
     Route: 065
  5. INSULIN DETEMIR [Concomitant]
     Route: 065

REACTIONS (4)
  - CONDITION AGGRAVATED [None]
  - DEPRESSIVE SYMPTOM [None]
  - DRUG INTERACTION [None]
  - JAUNDICE [None]
